FAERS Safety Report 4296480-5 (Version None)
Quarter: 2004Q1

REPORT INFORMATION
  Report Type: 
  Country: None (occurrence: None)
  Receive Date: 20040126
  Receipt Date: 20030822
  Transmission Date: 20041129
  Serious: No
  Sender: FDA-Public Use
  Company Number: USA030845180

PATIENT
  Age: 47 Year
  Sex: Male
  Weight: 105 kg

DRUGS (3)
  1. STRATTERA [Suspect]
     Indication: ATTENTION DEFICIT/HYPERACTIVITY DISORDER
     Dosage: 40 MG/DAY
     Dates: start: 20030821
  2. HYZAAR [Concomitant]
  3. ALLOPURINOL [Concomitant]

REACTIONS (2)
  - DYSURIA [None]
  - HYPOAESTHESIA [None]
